FAERS Safety Report 8886232 (Version 1)
Quarter: 2012Q4

REPORT INFORMATION
  Report Type: 
  Country: US (occurrence: US)
  Receive Date: 20121105
  Receipt Date: 20121105
  Transmission Date: 20130627
  Serious: No
  Sender: FDA-Public Use
  Company Number: US-PFIZER INC-2012272231

PATIENT
  Age: 57 Year
  Sex: Female

DRUGS (6)
  1. NITROSTAT [Suspect]
     Indication: CHEST PAIN
     Dosage: 0.4 mg, Place 1 Tablet (0.4 Mg) by Sublingual
     Route: 060
     Dates: start: 20120906
  2. ALPRAZOLAM [Suspect]
     Dosage: 0.5 mg, 4x/day (Take 1 Tablet 4 X 3 a day)
  3. PREDNISONE [Concomitant]
     Dosage: 20 mg, 2x/day (Take 1 tablet(s) twice a day by oral route for 5 days)
     Route: 048
     Dates: start: 20120911, end: 20120916
  4. OSTEO BI-FLEX [Concomitant]
     Dosage: UNK
     Dates: start: 20120906
  5. ALENDRONATE SODIUM [Concomitant]
     Dosage: 70 mg, UNK
     Dates: start: 20120906
  6. METHOCARBAMOL [Concomitant]
     Dosage: 500 mg, 4x/day (Take 2 tablet(s) 4 times a day by oral route)
     Route: 048
     Dates: start: 20120906

REACTIONS (3)
  - Ear disorder [Unknown]
  - Ear congestion [Unknown]
  - Cough [Unknown]
